FAERS Safety Report 5756028-2 (Version None)
Quarter: 2008Q2

REPORT INFORMATION
  Report Type: 
  Country: None (occurrence: None)
  Receive Date: 20080602
  Receipt Date: 20080523
  Transmission Date: 20081010
  Serious: Yes (Hospitalization, Other)
  Sender: FDA-Public Use
  Company Number: PHHY2008FR08759

PATIENT
  Sex: Female

DRUGS (3)
  1. FEMARA [Suspect]
     Dosage: 2.5 MG, QD
     Dates: end: 20080325
  2. ANTINEOPLASTIC AGENTS [Concomitant]
     Indication: BREAST CANCER
  3. HORMONES [Suspect]
     Indication: BREAST CANCER

REACTIONS (5)
  - INTRACARDIAC MASS [None]
  - MASTECTOMY [None]
  - PULMONARY EMBOLISM [None]
  - STAPHYLOCOCCAL INFECTION [None]
  - VENA CAVA THROMBOSIS [None]
